FAERS Safety Report 21991607 (Version 1)
Quarter: 2023Q1

REPORT INFORMATION
  Report Type: Spontaneous
  Country: IT (occurrence: IT)
  Receive Date: 20230214
  Receipt Date: 20230214
  Transmission Date: 20230418
  Serious: Yes (Death, Hospitalization)
  Sender: FDA-Public Use
  Company Number: None

PATIENT
  Age: 25 Year
  Sex: Male

DRUGS (4)
  1. TALOFEN [Suspect]
     Active Substance: PROMAZINE HYDROCHLORIDE
     Indication: Schizophrenia
     Dosage: 100 MG DAILY
     Route: 030
     Dates: end: 20221212
  2. QUETIAPINE [Suspect]
     Active Substance: QUETIAPINE
     Indication: Schizophrenia
     Dosage: 150 MILLIGRAMS TWICE DAILY
     Route: 048
     Dates: end: 20221212
  3. TEGRETOL [Suspect]
     Active Substance: CARBAMAZEPINE
     Indication: Epilepsy
     Dosage: 2 TABLET DAILY
     Route: 048
  4. PALIPERIDONE [Suspect]
     Active Substance: PALIPERIDONE
     Indication: Schizophrenia
     Dosage: 1 DOSAGE FORM
     Route: 030
     Dates: end: 20221209

REACTIONS (5)
  - Coma [Fatal]
  - Hyperpyrexia [Fatal]
  - Rhabdomyolysis [Fatal]
  - Acute kidney injury [Fatal]
  - Neuroleptic malignant syndrome [Fatal]

NARRATIVE: CASE EVENT DATE: 20221215
